FAERS Safety Report 19418952 (Version 1)
Quarter: 2021Q2

REPORT INFORMATION
  Report Type: Spontaneous
  Country: FR (occurrence: FR)
  Receive Date: 20210615
  Receipt Date: 20210615
  Transmission Date: 20210717
  Serious: Yes (Other)
  Sender: FDA-Public Use
  Company Number: FR-SA-2021SA189556

PATIENT
  Age: 61 Year
  Sex: Female

DRUGS (1)
  1. LANTUS SOLOSTAR [Suspect]
     Active Substance: INSULIN GLARGINE
     Indication: DIABETES MELLITUS
     Dosage: 14 IU, IN THE EVENING
     Route: 065
     Dates: start: 2014

REACTIONS (8)
  - Hyperhidrosis [Unknown]
  - Palpitations [Unknown]
  - Hypertension [Unknown]
  - Tachycardia [Unknown]
  - Arrhythmia [Unknown]
  - Anxiety [Unknown]
  - Cold sweat [Unknown]
  - Hypoglycaemia [Unknown]
